FAERS Safety Report 15893922 (Version 1)
Quarter: 2019Q1

REPORT INFORMATION
  Report Type: Spontaneous
  Country: US (occurrence: US)
  Receive Date: 20190131
  Receipt Date: 20190131
  Transmission Date: 20190417
  Serious: No
  Sender: FDA-Public Use
  Company Number: US-ELI_LILLY_AND_COMPANY-US201901014470

PATIENT
  Sex: Female

DRUGS (3)
  1. FORTEO [Suspect]
     Active Substance: TERIPARATIDE
     Indication: PRODUCT USED FOR UNKNOWN INDICATION
     Dosage: UNK UNK, UNKNOWN
     Route: 065
     Dates: start: 20181003
  2. VITAMIN D COLECALCIFEROL [Concomitant]
     Indication: OSTEOPOROSIS
  3. ORTHOFIX [Concomitant]
     Indication: OSTEOPOROSIS

REACTIONS (2)
  - Dental caries [Not Recovered/Not Resolved]
  - Injection site erythema [Recovering/Resolving]
